FAERS Safety Report 5401160-6 (Version None)
Quarter: 2007Q3

REPORT INFORMATION
  Report Type: 
  Country: None (occurrence: None)
  Receive Date: 20070731
  Receipt Date: 20070724
  Transmission Date: 20080115
  Serious: Yes (Hospitalization, Other)
  Sender: FDA-Public Use
  Company Number: PHBS2007BR10208

PATIENT
  Age: 65 Year
  Sex: Male

DRUGS (2)
  1. ZELNORM [Suspect]
     Indication: COLITIS
     Dosage: 6 MG, ONCE/SINGLE
     Route: 048
  2. METHYLDOPA [Concomitant]
     Indication: HYPERTENSION
     Dosage: 250 MG, QD
     Route: 048
     Dates: start: 20050101

REACTIONS (4)
  - ABDOMINAL DISTENSION [None]
  - DRUG INTOLERANCE [None]
  - GASTRIC LAVAGE [None]
  - MALIGNANT NEOPLASM OF SPINAL CORD [None]
